FAERS Safety Report 4999092-0 (Version None)
Quarter: 2006Q2

REPORT INFORMATION
  Report Type: 
  Country: None (occurrence: None)
  Receive Date: 20060509
  Receipt Date: 20060426
  Transmission Date: 20061013
  Serious: Yes (Hospitalization)
  Sender: FDA-Public Use
  Company Number: T200600255

PATIENT
  Age: 53 Year
  Sex: Male

DRUGS (1)
  1. MORPHINE ORAL CONCENTRATE [Suspect]
     Indication: DYSPNOEA
     Dosage: 10 MG, PRN, ORAL
     Route: 048
     Dates: start: 20060330

REACTIONS (2)
  - DEVICE FAILURE [None]
  - FOREIGN BODY TRAUMA [None]
